FAERS Safety Report 20902778 (Version 1)
Quarter: 2022Q2

REPORT INFORMATION
  Report Type: Spontaneous
  Country: CZ (occurrence: CZ)
  Receive Date: 20220601
  Receipt Date: 20220601
  Transmission Date: 20220721
  Serious: Yes (Other)
  Sender: FDA-Public Use
  Company Number: CZ-PFIZER INC-202200752699

PATIENT
  Age: 63 Year
  Sex: Female

DRUGS (4)
  1. MEROPENEM [Interacting]
     Active Substance: MEROPENEM
     Indication: Urosepsis
     Dosage: UNK
  2. VALPROATE SODIUM [Interacting]
     Active Substance: VALPROATE SODIUM
     Indication: Epilepsy
     Dosage: UNK
  3. PHENYTOIN [Concomitant]
     Active Substance: PHENYTOIN
     Indication: Epilepsy
     Dosage: UNK
  4. LEVETIRACETAM [Concomitant]
     Active Substance: LEVETIRACETAM
     Indication: Epilepsy
     Dosage: UNK

REACTIONS (5)
  - Drug interaction [Recovered/Resolved]
  - Anticonvulsant drug level below therapeutic [Recovered/Resolved]
  - Epilepsy [Recovered/Resolved]
  - Status epilepticus [Unknown]
  - Contraindicated product administered [Unknown]
